FAERS Safety Report 17773877 (Version 3)
Quarter: 2020Q2

REPORT INFORMATION
  Report Type: Report from Study
  Country: None (occurrence: US)
  Receive Date: 20200513
  Receipt Date: 20200618
  Transmission Date: 20200714
  Serious: Yes (Other)
  Sender: FDA-Public Use
  Company Number: US-ABBVIE-20K-163-3398847-00

PATIENT
  Sex: Male

DRUGS (3)
  1. HUMIRA [Suspect]
     Active Substance: ADALIMUMAB
     Route: 058
  2. HUMIRA [Suspect]
     Active Substance: ADALIMUMAB
     Dosage: CITRATE FREE
     Route: 058
     Dates: start: 202004
  3. HUMIRA [Suspect]
     Active Substance: ADALIMUMAB
     Indication: COLITIS ULCERATIVE
     Dosage: CITRATE FREE
     Route: 058
     Dates: end: 202004

REACTIONS (7)
  - Dysstasia [Recovering/Resolving]
  - Exostosis [Recovering/Resolving]
  - Sciatica [Recovering/Resolving]
  - Unevaluable event [Not Recovered/Not Resolved]
  - Muscle spasms [Recovering/Resolving]
  - Drug ineffective [Recovering/Resolving]
  - Impaired healing [Unknown]
